FAERS Safety Report 4977875-0 (Version None)
Quarter: 2006Q1

REPORT INFORMATION
  Report Type: 
  Country: None (occurrence: None)
  Receive Date: 20060215
  Receipt Date: 20050203
  Transmission Date: 20060701
  Serious: No
  Sender: FDA-Public Use
  Company Number: MC200500132

PATIENT
  Age: 78 Year
  Sex: Female

DRUGS (3)
  1. ANGIOMAX [Suspect]
     Dosage: 0.75 MG/KG, HR, INTRAVENOUS
     Route: 042
     Dates: start: 20041215, end: 20041215
  2. ASA (ACFETYLSALICYLIC ACID) [Concomitant]
  3. PLAVIX [Concomitant]

REACTIONS (1)
  - STENT OCCLUSION [None]
